FAERS Safety Report 5556829-X (Version None)
Quarter: 2007Q4

REPORT INFORMATION
  Report Type: 
  Country: None (occurrence: None)
  Receive Date: 20071211
  Receipt Date: 20071211
  Transmission Date: 20080405
  Serious: Yes (Hospitalization)
  Sender: FDA-Public Use
  Company Number: None

PATIENT
  Age: 59 Year
  Sex: Male
  Weight: 61.2356 kg

DRUGS (1)
  1. CHANTIX [Suspect]
     Indication: SMOKING CESSATION THERAPY
     Dosage: 0.5MG DAILY X3 DAYS PO 0.5MG TWICE DAILY PO
     Route: 048
     Dates: start: 20071114, end: 20071121

REACTIONS (3)
  - CONDITION AGGRAVATED [None]
  - PSYCHOTIC DISORDER [None]
  - SCHIZOPHRENIA [None]
